FAERS Safety Report 6464945-3 (Version None)
Quarter: 2009Q4

REPORT INFORMATION
  Report Type: 
  Country: None (occurrence: None)
  Receive Date: 20091201
  Receipt Date: 20091123
  Transmission Date: 20100525
  Serious: Yes (Death)
  Sender: FDA-Public Use
  Company Number: FR-BRISTOL-MYERS SQUIBB COMPANY-14868509

PATIENT
  Age: 58 Year
  Sex: Female

DRUGS (4)
  1. CETUXIMAB [Suspect]
     Indication: PHARYNGEAL CANCER STAGE UNSPECIFIED
     Dosage: RECENT INF:03NOV09
     Route: 042
     Dates: start: 20091027, end: 20091103
  2. CISPLATIN [Suspect]
     Indication: PHARYNGEAL CANCER STAGE UNSPECIFIED
     Dosage: RECENT INF:27OCT09
     Route: 042
     Dates: start: 20091027, end: 20091027
  3. DOCETAXEL [Suspect]
     Indication: PHARYNGEAL CANCER STAGE UNSPECIFIED
     Dosage: RECENT INF:27OCT09
     Route: 042
     Dates: start: 20091027, end: 20091027
  4. FLUOROURACIL [Suspect]
     Indication: PHARYNGEAL CANCER STAGE UNSPECIFIED
     Dosage: RECENT INF:31OCT09
     Route: 042
     Dates: start: 20091027, end: 20091031

REACTIONS (1)
  - CARDIAC ARREST [None]
